FAERS Safety Report 5504207-1 (Version None)
Quarter: 2007Q4

REPORT INFORMATION
  Report Type: 
  Country: None (occurrence: None)
  Receive Date: 20071101
  Receipt Date: 20071029
  Transmission Date: 20080405
  Serious: Yes (Life-Threatening, Hospitalization)
  Sender: FDA-Public Use
  Company Number: B0493420A

PATIENT
  Age: 35 Year
  Sex: Male

DRUGS (12)
  1. CARVEDILOL [Suspect]
     Indication: SELF MUTILATION
     Dosage: 320MG SINGLE DOSE
     Route: 048
     Dates: start: 20070818, end: 20070818
  2. ALLOPURINOL [Suspect]
     Indication: SELF MUTILATION
     Dosage: 3200MG SINGLE DOSE
     Route: 048
     Dates: start: 20070818, end: 20070818
  3. ADALAT [Suspect]
     Indication: SELF MUTILATION
     Dosage: 1920MG SINGLE DOSE
     Route: 048
     Dates: start: 20070818, end: 20070818
  4. DIOVAN [Suspect]
     Indication: SELF MUTILATION
     Dosage: 320MG SINGLE DOSE
     Route: 048
     Dates: start: 20070818, end: 20070818
  5. OLMETEC [Suspect]
     Indication: SELF MUTILATION
     Dosage: 1480MG SINGLE DOSE
     Route: 048
     Dates: start: 20070818, end: 20070818
  6. BEER [Suspect]
     Indication: DRUG USE FOR UNKNOWN INDICATION
     Route: 065
     Dates: start: 20070818, end: 20070818
  7. SPIRITS [Suspect]
     Indication: DRUG USE FOR UNKNOWN INDICATION
     Route: 065
     Dates: start: 20070818, end: 20070818
  8. ACTIVATED CARBON [Concomitant]
  9. SORBITOL [Concomitant]
  10. CALCITRIOL [Concomitant]
     Route: 042
  11. FLUID REPLACEMENT [Concomitant]
  12. DOPAMINE HYDROCHLORIDE [Concomitant]

REACTIONS (9)
  - BLOOD ALKALINE PHOSPHATASE DECREASED [None]
  - BLOOD LACTATE DEHYDROGENASE INCREASED [None]
  - FIBRIN INCREASED [None]
  - MULTIPLE DRUG OVERDOSE [None]
  - PARALYSIS [None]
  - SHOCK [None]
  - SUICIDE ATTEMPT [None]
  - VOMITING [None]
  - WHITE BLOOD CELL COUNT INCREASED [None]
